FAERS Safety Report 18860314 (Version 1)
Quarter: 2021Q1

REPORT INFORMATION
  Report Type: Spontaneous
  Country: FR (occurrence: FR)
  Receive Date: 20210208
  Receipt Date: 20210208
  Transmission Date: 20210420
  Serious: Yes (Other)
  Sender: FDA-Public Use
  Company Number: FR-009507513-2102FRA000128

PATIENT

DRUGS (1)
  1. PREVYMIS [Suspect]
     Active Substance: LETERMOVIR

REACTIONS (2)
  - Graft versus host disease [Unknown]
  - Dysphagia [Unknown]
